FAERS Safety Report 7660315-0 (Version None)
Quarter: 2011Q3

REPORT INFORMATION
  Report Type: 
  Country: None (occurrence: None)
  Receive Date: 20110805
  Receipt Date: 20110801
  Transmission Date: 20111222
  Serious: Yes (Hospitalization, Other)
  Sender: FDA-Public Use
  Company Number: US-ABBOTT-10P-163-0635326-00

PATIENT
  Sex: Female

DRUGS (10)
  1. TYLENOL-500 [Concomitant]
     Indication: PAIN
  2. PREDNISONE [Concomitant]
     Indication: ARTHRITIS
     Dosage: 10 MG PRN
  3. ALPRAZOLAM [Concomitant]
     Indication: ANXIETY
     Dosage: 2MG PRN
  4. HUMIRA [Suspect]
     Dates: start: 20110701
  5. IBUPROFEN [Concomitant]
     Indication: PAIN
  6. HUMIRA [Suspect]
     Indication: RHEUMATOID ARTHRITIS
     Route: 058
     Dates: start: 20070101, end: 20100101
  7. LUNESTA [Concomitant]
     Indication: INSOMNIA
  8. OXYCODONE HCL [Concomitant]
     Indication: PAIN
  9. MARINOL [Concomitant]
     Indication: NAUSEA
  10. MARINOL [Concomitant]
     Indication: MIGRAINE

REACTIONS (12)
  - GALLBLADDER DISORDER [None]
  - ABDOMINAL DISCOMFORT [None]
  - BRONCHITIS [None]
  - ENDOMETRIOSIS [None]
  - VARICELLA [None]
  - SYNCOPE [None]
  - LEIOMYOMA [None]
  - UTERINE LEIOMYOMA [None]
  - PNEUMONIA [None]
  - PANCREATITIS [None]
  - INJECTION SITE WARMTH [None]
  - HYPOPHAGIA [None]
